FAERS Safety Report 9044819 (Version 1)
Quarter: 2013Q1

REPORT INFORMATION
  Report Type: Report from Study
  Country: US (occurrence: US)
  Receive Date: 20130130
  Receipt Date: 20130130
  Transmission Date: 20140127
  Serious: No
  Sender: FDA-Public Use
  Company Number: US-ABBOTT-12P-163-0968093-00

PATIENT
  Age: 65 Year
  Sex: Female

DRUGS (12)
  1. HUMIRA 40 MG/0.8 ML PEN [Suspect]
     Indication: CROHN^S DISEASE
     Dates: start: 201206
  2. IMURAN [Concomitant]
     Indication: CROHN^S DISEASE
  3. METOPROLOL [Concomitant]
     Indication: HYPERTENSION
  4. LISINOPRIL HCTZ [Concomitant]
     Indication: HYPERTENSION
     Dosage: 20/125MCG
  5. METFORMIN HCL [Concomitant]
     Indication: DIABETES MELLITUS
  6. HUMALOG [Concomitant]
     Indication: DIABETES MELLITUS
     Dosage: 75/25; 15U BREAKFAST/LUNCH; 29U DINNER
  7. VICTOZA [Concomitant]
     Indication: DIABETES MELLITUS
  8. RESTASIS [Concomitant]
     Indication: DRY EYE
     Dosage: IN EACH EYE
  9. FERROUS GLUCONATE [Concomitant]
     Indication: MINERAL SUPPLEMENTATION
  10. MULTIVITAMIN [Concomitant]
     Indication: PRODUCT USED FOR UNKNOWN INDICATION
  11. CALCIUM [Concomitant]
     Indication: PRODUCT USED FOR UNKNOWN INDICATION
  12. FISH OIL [Concomitant]
     Indication: SUPPLEMENTATION THERAPY

REACTIONS (2)
  - Injection site haemorrhage [Recovered/Resolved]
  - Injection site haemorrhage [Recovered/Resolved]
